FAERS Safety Report 24404055 (Version 1)
Quarter: 2024Q4

REPORT INFORMATION
  Report Type: Spontaneous
  Country: US (occurrence: US)
  Receive Date: 20241007
  Receipt Date: 20241007
  Transmission Date: 20250115
  Serious: Yes (Other)
  Sender: ALEMBIC
  Company Number: US-ALEMBIC PHARMACUETICALS LIMITED-2024SCAL001419

PATIENT

DRUGS (1)
  1. METHOTREXATE [Suspect]
     Active Substance: METHOTREXATE
     Indication: Rheumatoid arthritis
     Dosage: DOSE WAS TITRATED UP TO 20MG
     Route: 065

REACTIONS (6)
  - Rheumatoid lung [Unknown]
  - Pulmonary necrosis [Unknown]
  - Pneumonitis [Unknown]
  - Pulmonary cavitation [Unknown]
  - Pulmonary fibrosis [Unknown]
  - Pulmonary mass [Unknown]
